FAERS Safety Report 6835407-6 (Version None)
Quarter: 2010Q3

REPORT INFORMATION
  Report Type: 
  Country: None (occurrence: None)
  Receive Date: 20100712
  Receipt Date: 20100712
  Transmission Date: 20110219
  Serious: Yes (Other)
  Sender: FDA-Public Use
  Company Number: None

PATIENT
  Age: 66 Year
  Sex: Female
  Weight: 66.2252 kg

DRUGS (1)
  1. SEROQUEL [Suspect]
     Dosage: 400MG AT NIGHT
     Dates: start: 20040101, end: 20090101

REACTIONS (6)
  - AGORAPHOBIA [None]
  - ANXIETY [None]
  - CRYING [None]
  - INSOMNIA [None]
  - PANIC ATTACK [None]
  - SUICIDAL IDEATION [None]
